FAERS Safety Report 5000873-8 (Version None)
Quarter: 2006Q2

REPORT INFORMATION
  Report Type: 
  Country: None (occurrence: None)
  Receive Date: 20060512
  Receipt Date: 20050406
  Transmission Date: 20061013
  Serious: No
  Sender: FDA-Public Use
  Company Number: US-GLAXOSMITHKLINE-A0553022A

PATIENT
  Age: 68 Year
  Sex: Female

DRUGS (5)
  1. RELAFEN [Suspect]
     Indication: BACK PAIN
     Dosage: 1000MG PER DAY
     Route: 048
     Dates: start: 19960101
  2. ATACAND [Concomitant]
  3. IMIPRAMINE [Concomitant]
  4. SYNTHROID [Concomitant]
  5. OSCAL [Concomitant]

REACTIONS (1)
  - URTICARIA [None]
